FAERS Safety Report 7805158-X (Version None)
Quarter: 2011Q4

REPORT INFORMATION
  Report Type: 
  Country: None (occurrence: None)
  Receive Date: 20111010
  Receipt Date: 20111004
  Transmission Date: 20120403
  Serious: Yes (Other)
  Sender: FDA-Public Use
  Company Number: US-SHIRE-ALL1-2011-03750

PATIENT
  Sex: Male

DRUGS (1)
  1. FIRAZYR [Suspect]
     Indication: HEREDITARY ANGIOEDEMA
     Dosage: 30 MG(3.0ML)PREFILLED SYRINGE, AS REQ'D
     Route: 065
     Dates: start: 20110927, end: 20110929

REACTIONS (3)
  - URTICARIA [None]
  - RASH GENERALISED [None]
  - SWELLING [None]
